FAERS Safety Report 21264176 (Version 2)
Quarter: 2025Q2

REPORT INFORMATION
  Report Type: Report from Study
  Country: US (occurrence: US)
  Receive Date: 20220829
  Receipt Date: 20250528
  Transmission Date: 20250717
  Serious: No
  Sender: KYOWA
  Company Number: US-KYOWAKIRIN-2022BKK013483

PATIENT

DRUGS (2)
  1. BUROSUMAB [Suspect]
     Active Substance: BUROSUMAB
     Indication: Hereditary hypophosphataemic rickets
     Route: 065
     Dates: start: 20190410
  2. BUROSUMAB [Suspect]
     Active Substance: BUROSUMAB
     Route: 058

REACTIONS (2)
  - Tooth abscess [Not Recovered/Not Resolved]
  - Product dose omission issue [Unknown]
